FAERS Safety Report 6575063-8 (Version None)
Quarter: 2010Q1

REPORT INFORMATION
  Report Type: 
  Country: None (occurrence: None)
  Receive Date: 20100209
  Receipt Date: 20100208
  Transmission Date: 20100710
  Serious: Yes (Hospitalization)
  Sender: FDA-Public Use
  Company Number: FR-WYE-H12863710

PATIENT
  Sex: Male
  Weight: 68 kg

DRUGS (6)
  1. NERATINIB [Suspect]
     Indication: NEOPLASM
     Route: 048
     Dates: start: 20091214, end: 20100104
  2. NERATINIB [Suspect]
     Route: 048
     Dates: start: 20100101
  3. HYDROCORTISONE [Concomitant]
     Indication: RASH PAPULAR
  4. LEVOTHYROXINE SODIUM [Concomitant]
     Indication: THYROID CANCER
     Dosage: 150 MCG FREQUENCY NOT SPECIFIED
  5. TEMSIROLIMUS [Suspect]
     Indication: NEOPLASM
     Route: 042
     Dates: start: 20091214, end: 20100104
  6. TEMSIROLIMUS [Suspect]
     Route: 042
     Dates: start: 20100101

REACTIONS (1)
  - RHABDOMYOLYSIS [None]
